FAERS Safety Report 20386800 (Version 1)
Quarter: 2022Q1

REPORT INFORMATION
  Report Type: Report from Study
  Country: CA (occurrence: CA)
  Receive Date: 20220127
  Receipt Date: 20220127
  Transmission Date: 20220423
  Serious: Yes (Other)
  Sender: FDA-Public Use
  Company Number: CA-JNJFOC-20220128756

PATIENT
  Age: 74 Year
  Sex: Female

DRUGS (12)
  1. UPTRAVI [Suspect]
     Active Substance: SELEXIPAG
     Indication: Pulmonary hypertension
     Route: 048
     Dates: start: 20211220
  2. RABEPRAZOLE [Concomitant]
     Active Substance: RABEPRAZOLE
  3. SILDENAFIL [Concomitant]
     Active Substance: SILDENAFIL
  4. BOSENTAN [Concomitant]
     Active Substance: BOSENTAN
  5. DULOXETINE [Concomitant]
     Active Substance: DULOXETINE
  6. ROSUVASTATIN [Concomitant]
     Active Substance: ROSUVASTATIN
  7. PERINDOPRIL [Concomitant]
     Active Substance: PERINDOPRIL
  8. ZOPICLONE [Concomitant]
     Active Substance: ZOPICLONE
  9. ELIQUIS [Concomitant]
     Active Substance: APIXABAN
  10. TYLENOL [Concomitant]
     Active Substance: ACETAMINOPHEN
  11. ADVIL [Concomitant]
     Active Substance: IBUPROFEN
  12. TETRACYCLINE HYDROCHLORIDE [Concomitant]
     Active Substance: TETRACYCLINE HYDROCHLORIDE

REACTIONS (2)
  - Product dose omission issue [Unknown]
  - Abdominal discomfort [Not Recovered/Not Resolved]

NARRATIVE: CASE EVENT DATE: 20220113
